FAERS Safety Report 9527582 (Version 4)
Quarter: 2014Q1

REPORT INFORMATION
  Report Type: Spontaneous
  Country: JP (occurrence: JP)
  Receive Date: 20130917
  Receipt Date: 20140106
  Transmission Date: 20141002
  Serious: Yes (Hospitalization, Other)
  Sender: FDA-Public Use
  Company Number: JP-AMGEN-JPNSP2013056383

PATIENT
  Age: 76 Year
  Sex: Female
  Weight: 76 kg

DRUGS (20)
  1. ENBREL [Suspect]
     Indication: RHEUMATOID ARTHRITIS
     Dosage: 25 MG, WEEKLY
     Route: 058
     Dates: start: 20080416, end: 20130731
  2. RHEUMATREX                         /00113802/ [Concomitant]
     Indication: RHEUMATOID ARTHRITIS
     Dosage: 4 MG, WEEKLY
     Route: 048
     Dates: start: 2003
  3. ISCOTIN                            /00030201/ [Concomitant]
     Dosage: 100 MG, 2X/DAY
     Route: 048
  4. RIBOVIX [Concomitant]
     Dosage: 20 MG, 2X/DAY
     Route: 048
  5. ATORVASTATIN [Concomitant]
     Dosage: 10 MG, 1X/DAY
     Route: 048
  6. OMEPRAZOLE [Concomitant]
     Dosage: 20 MG, 1X/DAY
  7. PREDNISOLONE [Concomitant]
     Indication: RHEUMATOID ARTHRITIS
     Dosage: 1 MG, 2X/DAY
     Dates: start: 2003
  8. BONALON [Concomitant]
     Dosage: 5 MG, 1X/DAY
     Route: 048
  9. FUROSEMIDE [Concomitant]
     Dosage: 20 MG, 1X/DAY
     Route: 048
  10. D ALFA [Concomitant]
     Dosage: 0.5 MG, 1X/DAY
     Route: 048
  11. DIOVAN [Concomitant]
     Dosage: 80 MG, 1X/DAY
  12. ALLORINE [Concomitant]
     Dosage: 100 MG, ALTERNATE DAY
     Route: 048
  13. FOLIAMIN [Concomitant]
     Dosage: 5 MG, WEEKLY
     Route: 048
  14. MAALOX                             /00082501/ [Concomitant]
     Dosage: 1.2 G, 3X/DAY
     Route: 048
  15. HALCION [Concomitant]
     Dosage: UNK
     Route: 048
  16. PURSENNID                          /00142207/ [Concomitant]
     Dosage: UNK
     Route: 048
  17. HERBAL EXTRACT NOS [Concomitant]
     Dosage: UNK
     Route: 048
  18. HUMALOG [Concomitant]
     Dosage: UNK
     Route: 058
  19. MECOBALAMIN [Concomitant]
     Dosage: UNK
     Route: 048
  20. LIMARMONE [Concomitant]
     Dosage: UNK
     Route: 048

REACTIONS (1)
  - Mesenteric panniculitis [Recovering/Resolving]
